FAERS Safety Report 8821088 (Version 1)
Quarter: 2012Q4

REPORT INFORMATION
  Report Type: 
  Country: US (occurrence: US)
  Receive Date: 20121002
  Receipt Date: 20121002
  Transmission Date: 20130627
  Serious: No
  Sender: FDA-Public Use
  Company Number: US-009507513-1210USA000481

PATIENT
  Sex: Male

DRUGS (2)
  1. SAPHRIS [Suspect]
     Indication: SCHIZOPHRENIA
     Dosage: 5 mg, qd
     Route: 060
  2. SAPHRIS [Suspect]
     Dosage: 5 mg, qw
     Route: 060

REACTIONS (2)
  - Myoclonus [Unknown]
  - Inappropriate schedule of drug administration [Unknown]
